FAERS Safety Report 5938494-2 (Version None)
Quarter: 2008Q4

REPORT INFORMATION
  Report Type: 
  Country: None (occurrence: None)
  Receive Date: 20081021
  Receipt Date: 20080505
  Transmission Date: 20090506
  Serious: Yes (Other)
  Sender: FDA-Public Use
  Company Number: US-WYE-H03983408

PATIENT
  Sex: Female

DRUGS (3)
  1. PREMARIN [Suspect]
  2. DEPO-ESTRADIOL [Suspect]
  3. ESTROGENS (ESTROGENS, ) [Suspect]

REACTIONS (2)
  - BREAST CANCER [None]
  - GALLBLADDER DISORDER [None]
